FAERS Safety Report 7811932-6 (Version None)
Quarter: 2011Q4

REPORT INFORMATION
  Report Type: 
  Country: None (occurrence: None)
  Receive Date: 20111013
  Receipt Date: 20111012
  Transmission Date: 20120403
  Serious: Yes (Hospitalization)
  Sender: FDA-Public Use
  Company Number: PHHO2010JP13668

PATIENT
  Sex: Male
  Weight: 64 kg

DRUGS (6)
  1. PETROLATUM SALICYLICUM [Concomitant]
     Indication: SKIN INFECTION
     Dosage: UNK
     Dates: start: 20100715
  2. CEFOTIAM HYDROCHLORIDE [Concomitant]
  3. GENTAMICIN SULFATE [Concomitant]
  4. MYSER [Concomitant]
     Indication: SKIN INFECTION
     Dosage: UNK
     Dates: start: 20100527
  5. IMATINIB MESYLATE [Suspect]
     Indication: CHRONIC MYELOID LEUKAEMIA
     Dosage: UNK
     Route: 048
     Dates: start: 20071213
  6. CEFAZOLIN SODIUM [Concomitant]

REACTIONS (5)
  - SKIN FISSURES [None]
  - CELLULITIS [None]
  - ERYTHEMA [None]
  - PAIN IN EXTREMITY [None]
  - SWELLING [None]
